FAERS Safety Report 6202528-0 (Version None)
Quarter: 2009Q2

REPORT INFORMATION
  Report Type: 
  Country: None (occurrence: None)
  Receive Date: 20090526
  Receipt Date: 20090515
  Transmission Date: 20091009
  Serious: Yes (Hospitalization)
  Sender: FDA-Public Use
  Company Number: SE-PFIZER INC-2009190736

PATIENT

DRUGS (1)
  1. PREDNISOLONE STEAGLATE AND PREDNISOLONE [Suspect]
     Dosage: 10 MG, 1X/DAY
     Route: 048

REACTIONS (2)
  - DIARRHOEA [None]
  - VOMITING [None]
